FAERS Safety Report 9952963 (Version 1)
Quarter: 2014Q1

REPORT INFORMATION
  Report Type: Spontaneous
  Country: US (occurrence: US)
  Receive Date: 20140304
  Receipt Date: 20140304
  Transmission Date: 20141002
  Serious: No
  Sender: FDA-Public Use
  Company Number: US-ABBVIE-13P-163-1078511-00

PATIENT
  Age: 69 Year
  Sex: Female

DRUGS (8)
  1. HUMIRA [Suspect]
     Indication: COLITIS ULCERATIVE
     Dates: start: 201303
  2. LIALDA [Concomitant]
     Indication: COLITIS ULCERATIVE
  3. 6-MP [Concomitant]
     Indication: COLITIS ULCERATIVE
  4. DIOVAN [Concomitant]
     Indication: HYPERTENSION
  5. WELLBUTRIN [Concomitant]
     Indication: DEPRESSION
  6. PREDNISONE [Concomitant]
     Indication: COLITIS ULCERATIVE
  7. LUMIGAN [Concomitant]
     Indication: GLAUCOMA
  8. ADVAIR [Concomitant]
     Indication: ASTHMA

REACTIONS (3)
  - Wrong technique in drug usage process [Not Recovered/Not Resolved]
  - Injury associated with device [Not Recovered/Not Resolved]
  - Staphylococcal infection [Recovered/Resolved]
